FAERS Safety Report 8956884 (Version 2)
Quarter: 2012Q4

REPORT INFORMATION
  Report Type: Report from Study
  Country: US (occurrence: US)
  Receive Date: 20121210
  Receipt Date: 20121213
  Transmission Date: 20130627
  Serious: Yes (Hospitalization)
  Sender: FDA-Public Use
  Company Number: US-ACTELION-A-NJ2012-76046

PATIENT
  Age: 60 Year
  Sex: Male

DRUGS (4)
  1. VENTAVIS [Suspect]
     Indication: PULMONARY ARTERIAL HYPERTENSION
     Dosage: 5 mcg, six times a day
     Route: 055
     Dates: start: 20120418
  2. SILDENAFIL [Concomitant]
  3. LETAIRIS [Concomitant]
  4. PLAVIX [Concomitant]

REACTIONS (4)
  - Fall [Recovered/Resolved]
  - Presyncope [Recovered/Resolved]
  - Asthenia [Recovered/Resolved]
  - Dysstasia [None]
